FAERS Safety Report 15553700 (Version 2)
Quarter: 2018Q4

REPORT INFORMATION
  Report Type: Report from Study
  Country: PL (occurrence: PL)
  Receive Date: 20181026
  Receipt Date: 20181030
  Transmission Date: 20190205
  Serious: No
  Sender: FDA-Public Use
  Company Number: PL-ROCHE-1989947

PATIENT
  Age: 63 Year
  Sex: Male
  Weight: 75 kg

DRUGS (13)
  1. HYLO-COMOD [Concomitant]
     Active Substance: HYALURONATE SODIUM
     Indication: CONJUNCTIVITIS
     Route: 061
     Dates: start: 20170816
  2. DICORTINEFF (FLUDROCORTISONE ACETATE/GRAMICIDIN/NEOMYCIN SULFATE) [Concomitant]
     Indication: CHORIORETINOPATHY
     Route: 061
     Dates: start: 20170718, end: 20170816
  3. VEMURAFENIB. [Suspect]
     Active Substance: VEMURAFENIB
     Indication: MALIGNANT MELANOMA
     Dosage: TOTAL NUMBER OF TABLETS OF LAST VEMURAFENIB ADMINISTERED PRIOR TO AE ONSET: 3?DATE OF MOST RECENT DO
     Route: 048
     Dates: start: 20170314
  4. AXTIL [Concomitant]
     Indication: HYPERTENSION
     Route: 048
     Dates: start: 20170412
  5. GALVENOX [Concomitant]
     Indication: CHORIORETINOPATHY
     Route: 048
     Dates: start: 20170718, end: 20170816
  6. BLINDED ATEZOLIZUMAB [Suspect]
     Active Substance: ATEZOLIZUMAB
     Indication: MALIGNANT MELANOMA
     Dosage: DATE OF MOST RECENT DOSE OF BLINDED ATEZOLIZUMAB PRIOR TO AE ONSET: 16/AUG/2017?MOST RECENT DOSE OF
     Route: 042
     Dates: start: 20170411
  7. COBIMETINIB. [Suspect]
     Active Substance: COBIMETINIB
     Indication: MALIGNANT MELANOMA
     Dosage: LAST DOSE ADMINISTERED PRIOR TO AE: 60 MG?DATE OF MOST RECENT DOSE PRIOR TO AE ONSET: 05/JUL/2017.?M
     Route: 048
     Dates: start: 20170314
  8. EUTHYROX [Concomitant]
     Active Substance: LEVOTHYROXINE SODIUM
     Indication: HYPOTHYROIDISM
     Route: 048
     Dates: start: 20170516
  9. FLUKONAZOL [Concomitant]
     Active Substance: FLUCONAZOLE
     Route: 048
     Dates: start: 20170912, end: 20170918
  10. VITAMIN C [Concomitant]
     Active Substance: ASCORBIC ACID
     Indication: CHORIORETINOPATHY
     Route: 048
     Dates: start: 20170718, end: 20170816
  11. AMLOZEK [Concomitant]
     Active Substance: AMLODIPINE BESYLATE
     Indication: HYPERTENSION
     Route: 048
     Dates: start: 20170418
  12. NYSTATYNA [Concomitant]
     Indication: ORAL FUNGAL INFECTION
     Route: 061
     Dates: start: 20170912, end: 20170912
  13. YELLOX [Concomitant]
     Active Substance: BROMFENAC SODIUM
     Indication: CHORIORETINOPATHY
     Route: 061
     Dates: start: 20170704

REACTIONS (2)
  - Pneumonitis [Recovered/Resolved]
  - Pneumonitis [Recovered/Resolved]

NARRATIVE: CASE EVENT DATE: 20170822
